FAERS Safety Report 8076475-6 (Version None)
Quarter: 2011Q4

REPORT INFORMATION
  Report Type: 
  Country: None (occurrence: None)
  Receive Date: 20111221
  Receipt Date: 20110406
  Transmission Date: 20120403
  Serious: Yes (Other)
  Sender: FDA-Public Use
  Company Number: PHHY2010US42789

PATIENT
  Sex: Male

DRUGS (1)
  1. EXJADE [Suspect]
     Dosage: 500 MG, TID, ORAL
     Route: 048
     Dates: start: 20100409, end: 20100612

REACTIONS (4)
  - RENAL DISORDER [None]
  - ABDOMINAL PAIN LOWER [None]
  - ABDOMINAL DISTENSION [None]
  - LIVER DISORDER [None]
